FAERS Safety Report 7003402-2 (Version None)
Quarter: 2010Q3

REPORT INFORMATION
  Report Type: 
  Country: None (occurrence: None)
  Receive Date: 20100920
  Receipt Date: 20100802
  Transmission Date: 20110219
  Serious: No
  Sender: FDA-Public Use
  Company Number: US-PFIZER INC-2010097522

PATIENT
  Sex: Male
  Weight: 61.224 kg

DRUGS (2)
  1. CHANTIX [Suspect]
     Dosage: UNK
     Route: 048
     Dates: start: 20090101, end: 20100801
  2. NICORETTE [Concomitant]
     Dosage: UNK

REACTIONS (2)
  - ANXIETY [None]
  - IRRITABILITY [None]
